FAERS Safety Report 5125681-9 (Version None)
Quarter: 2006Q4

REPORT INFORMATION
  Report Type: 
  Country: None (occurrence: None)
  Receive Date: 20061006
  Receipt Date: 20060929
  Transmission Date: 20070319
  Serious: Yes (Hospitalization, Other)
  Sender: FDA-Public Use
  Company Number: T200601017

PATIENT
  Age: 53 Year
  Sex: Male

DRUGS (1)
  1. OPTIRAY 350 [Suspect]
     Indication: CATHETERISATION CARDIAC
     Dosage: 30 ML, SINGLE, INTRA-ARTERIAL
     Route: 013
     Dates: start: 20060914, end: 20060914

REACTIONS (1)
  - EMBOLISM [None]
